FAERS Safety Report 6330405-3 (Version None)
Quarter: 2009Q3

REPORT INFORMATION
  Report Type: 
  Country: None (occurrence: None)
  Receive Date: 20090827
  Receipt Date: 20090818
  Transmission Date: 20100115
  Serious: Yes (Other)
  Sender: FDA-Public Use
  Company Number: JP-ASTRAZENECA-2009SE07015

PATIENT
  Age: 72 Year
  Sex: Female

DRUGS (2)
  1. SEROQUEL [Suspect]
     Indication: PORIOMANIA
     Route: 048
  2. DEPAS [Concomitant]
     Route: 048

REACTIONS (3)
  - CONFUSIONAL STATE [None]
  - DELIRIUM [None]
  - PERSONALITY DISORDER [None]
